FAERS Safety Report 8425252-2 (Version None)
Quarter: 2012Q2

REPORT INFORMATION
  Report Type: 
  Country: None (occurrence: None)
  Receive Date: 20120611
  Receipt Date: 20120530
  Transmission Date: 20120825
  Serious: Yes (Other)
  Sender: FDA-Public Use
  Company Number: BR-JNJFOC-20120601049

PATIENT
  Age: 54 Year
  Sex: Male
  Weight: 63 kg

DRUGS (3)
  1. DIPHENHYDRAMINE HCL [Suspect]
     Indication: PRODUCT USED FOR UNKNOWN INDICATION
     Route: 065
  2. REMICADE [Suspect]
     Indication: COLITIS ULCERATIVE
     Dosage: 3 AMPOULES EACH 2 MONTHS
     Route: 042
     Dates: start: 20100101
  3. SOLU-CORTEF [Suspect]
     Indication: PRODUCT USED FOR UNKNOWN INDICATION
     Route: 065
     Dates: start: 20110101

REACTIONS (5)
  - INFUSION RELATED REACTION [None]
  - DYSPNOEA [None]
  - TUBERCULOSIS [None]
  - ANAL FISSURE [None]
  - BURNING SENSATION [None]
